FAERS Safety Report 9903599 (Version 1)
Quarter: 2014Q1

REPORT INFORMATION
  Report Type: Spontaneous
  Country: NL (occurrence: NL)
  Receive Date: 20140217
  Receipt Date: 20140217
  Transmission Date: 20141002
  Serious: Yes (Other)
  Sender: FDA-Public Use
  Company Number: NL-ABBVIE-14P-114-1203226-00

PATIENT
  Sex: 0

DRUGS (3)
  1. ADALIMUMAB [Suspect]
     Indication: CROHN^S DISEASE
     Dosage: INDUCTION DOSE, WEEK 0
     Route: 058
  2. ADALIMUMAB [Suspect]
     Dosage: WEEK 2
     Route: 058
  3. ADALIMUMAB [Suspect]
     Dosage: MAINTENANCE DOSE
     Route: 058

REACTIONS (1)
  - Bone marrow failure [Unknown]
